FAERS Safety Report 5373544-6 (Version None)
Quarter: 2007Q2

REPORT INFORMATION
  Report Type: 
  Country: None (occurrence: None)
  Receive Date: 20070626
  Receipt Date: 20070626
  Transmission Date: 20071010
  Serious: Yes (Hospitalization)
  Sender: FDA-Public Use
  Company Number: None

PATIENT
  Sex: Female
  Weight: 19 kg

DRUGS (1)
  1. FOCALIN XR [Suspect]
     Indication: AUTISM SPECTRUM DISORDER
     Dosage: 20MG 3 OR 4 TIMES DAILY PO
     Route: 048

REACTIONS (3)
  - CONVULSION [None]
  - DRUG WITHDRAWAL SYNDROME [None]
  - DYSTONIA [None]
